FAERS Safety Report 12208974 (Version 2)
Quarter: 2017Q2

REPORT INFORMATION
  Report Type: Spontaneous
  Country: US (occurrence: US)
  Receive Date: 20160324
  Receipt Date: 20170417
  Transmission Date: 20170830
  Serious: No
  Sender: FDA-Public Use
  Company Number: US-SHIONOGI, INC-2016000132

PATIENT
  Sex: Female
  Weight: 75.75 kg

DRUGS (12)
  1. FISH OIL [Concomitant]
     Active Substance: FISH OIL
     Indication: BLOOD CHOLESTEROL
     Dosage: UNK
     Route: 065
     Dates: start: 2006
  2. PREMARIN [Concomitant]
     Active Substance: ESTROGENS, CONJUGATED
     Indication: DISCOMFORT
  3. LEXAPRO [Concomitant]
     Active Substance: ESCITALOPRAM OXALATE
     Indication: ANXIETY
     Dosage: UNK
     Route: 065
     Dates: start: 2011
  4. SYNTHROID [Concomitant]
     Active Substance: LEVOTHYROXINE SODIUM
     Indication: THYROIDECTOMY
     Dosage: 0.5 MG, UNK
     Route: 065
     Dates: start: 1989
  5. PREMARIN [Concomitant]
     Active Substance: ESTROGENS, CONJUGATED
     Indication: VAGINAL HAEMORRHAGE
     Dosage: 0.625, 0.5 TWICE A WEEK
     Route: 065
  6. MULTIVITAMIN                       /00097801/ [Concomitant]
     Active Substance: VITAMINS
     Indication: SUPPLEMENTATION THERAPY
     Dosage: UNK
     Route: 065
     Dates: start: 2006
  7. OSPHENA [Suspect]
     Active Substance: OSPEMIFENE
     Indication: ATROPHIC VULVOVAGINITIS
  8. COENZYME Q10 [Concomitant]
     Active Substance: UBIDECARENONE
     Indication: BLOOD CHOLESTEROL
  9. BABY ASPIRIN [Concomitant]
     Active Substance: ASPIRIN
     Indication: PRODUCT USED FOR UNKNOWN INDICATION
     Dosage: 81 MG, QD
     Route: 065
  10. OSPHENA [Suspect]
     Active Substance: OSPEMIFENE
     Indication: VULVOVAGINAL DRYNESS
     Dosage: 60 MG, QD
     Route: 048
     Dates: start: 20160127
  11. OSPHENA [Suspect]
     Active Substance: OSPEMIFENE
     Indication: OFF LABEL USE
  12. COENZYME Q10 [Concomitant]
     Active Substance: UBIDECARENONE
     Indication: CARDIOVASCULAR EVENT PROPHYLAXIS

REACTIONS (5)
  - Therapeutic response unexpected [Unknown]
  - Off label use [Unknown]
  - Oedema genital [Unknown]
  - Labelled drug-drug interaction medication error [Unknown]
  - Drug prescribing error [Unknown]
